FAERS Safety Report 8900167 (Version 1)
Quarter: 2012Q4

REPORT INFORMATION
  Report Type: 
  Country: US (occurrence: US)
  Receive Date: 20121109
  Receipt Date: 20121109
  Transmission Date: 20130627
  Serious: Yes (Death)
  Sender: FDA-Public Use
  Company Number: PHEH2012US021994

PATIENT
  Age: 60 Year
  Sex: Male

DRUGS (4)
  1. ZOMETA [Suspect]
     Dosage: 4 mg / 5 ml every month
  2. PERCOCET [Concomitant]
     Dosage: 7.5 - 500
  3. JEVITY [Concomitant]
  4. NEUPOGEN [Concomitant]
     Dosage: 300 / 0.5

REACTIONS (1)
  - Death [Fatal]
